FAERS Safety Report 10240951 (Version 1)
Quarter: 2014Q2

REPORT INFORMATION
  Report Type: Spontaneous
  Country: BR (occurrence: BR)
  Receive Date: 20140617
  Receipt Date: 20140617
  Transmission Date: 20141212
  Serious: Yes (Other)
  Sender: FDA-Public Use
  Company Number: BR-ELI_LILLY_AND_COMPANY-BR201406001655

PATIENT
  Age: 58 Year
  Sex: Male
  Weight: 150 kg

DRUGS (7)
  1. HUMALOG MIX 25 [Suspect]
     Indication: DIABETES MELLITUS
     Dosage: 20 IU, EACH MORNING
     Route: 065
     Dates: start: 201405
  2. HUMALOG MIX 25 [Suspect]
     Dosage: 10 IU, EACH EVENING
     Route: 065
     Dates: start: 201405
  3. NAPRIX [Concomitant]
     Indication: BLOOD PRESSURE
     Dosage: UNK UNK, EACH MORNING
     Route: 065
  4. FENOFIBRATO [Concomitant]
     Indication: PRODUCT USED FOR UNKNOWN INDICATION
     Dosage: UNK, QD
     Route: 065
  5. ACETYLSALICYLIC ACID [Concomitant]
     Indication: PRODUCT USED FOR UNKNOWN INDICATION
     Dosage: UNK UNK, UNKNOWN
     Route: 065
  6. ROSUVASTATIN CALCIUM [Concomitant]
     Indication: PRODUCT USED FOR UNKNOWN INDICATION
     Dosage: UNK UNK, UNKNOWN
     Route: 065
  7. GALVUS MET [Concomitant]
     Indication: PRODUCT USED FOR UNKNOWN INDICATION
     Dosage: UNK, BID
     Route: 065
     Dates: start: 201405

REACTIONS (4)
  - Eye haemorrhage [Not Recovered/Not Resolved]
  - Weight decreased [Unknown]
  - Blood glucose increased [Unknown]
  - Asthenia [Not Recovered/Not Resolved]
